FAERS Safety Report 7901455-8 (Version None)
Quarter: 2011Q4

REPORT INFORMATION
  Report Type: 
  Country: None (occurrence: None)
  Receive Date: 20111108
  Receipt Date: 20111101
  Transmission Date: 20120403
  Serious: Yes (Life-Threatening, Hospitalization)
  Sender: FDA-Public Use
  Company Number: JP-JNJFOC-20110903308

PATIENT
  Sex: Male
  Weight: 61 kg

DRUGS (9)
  1. SENEVACUL [Concomitant]
     Route: 048
  2. RISPERDAL [Suspect]
     Indication: PRODUCT USED FOR UNKNOWN INDICATION
     Route: 048
  3. LONASEN [Concomitant]
     Route: 048
  4. LONASEN [Concomitant]
     Route: 048
     Dates: start: 20110531
  5. ROHYPNOL [Concomitant]
     Route: 065
  6. DEPAKENE [Concomitant]
     Route: 048
     Dates: start: 20110323
  7. RISPERDAL CONSTA [Suspect]
     Indication: SCHIZOPHRENIA
     Route: 030
  8. RISPERDAL CONSTA [Suspect]
     Route: 030
     Dates: start: 20100707
  9. MAGNESIUM SULFATE [Concomitant]
     Route: 048

REACTIONS (3)
  - GASTRIC ULCER [None]
  - INAPPROPRIATE SCHEDULE OF DRUG ADMINISTRATION [None]
  - SHOCK HAEMORRHAGIC [None]
